FAERS Safety Report 6538555-3 (Version None)
Quarter: 2010Q1

REPORT INFORMATION
  Report Type: 
  Country: None (occurrence: None)
  Receive Date: 20100114
  Receipt Date: 20100106
  Transmission Date: 20100710
  Serious: Yes (Congenital Anomaly)
  Sender: FDA-Public Use
  Company Number: US-GILEAD-2009-0026086

PATIENT
  Sex: Male

DRUGS (7)
  1. TRUVADA [Suspect]
     Route: 064
  2. RALTEGRAVIR [Concomitant]
     Route: 064
  3. VITAMIN B-12 [Concomitant]
     Route: 065
  4. TYLENOL (CAPLET) [Concomitant]
     Indication: PAIN
     Route: 064
  5. XOPENEX [Concomitant]
     Route: 064
  6. MOTRIN [Concomitant]
     Indication: PAIN
     Route: 064
  7. REMERON [Concomitant]
     Route: 064

REACTIONS (1)
  - CONGENITAL HEART VALVE DISORDER [None]
